FAERS Safety Report 5096850-1 (Version None)
Quarter: 2006Q3

REPORT INFORMATION
  Report Type: 
  Country: None (occurrence: None)
  Receive Date: 20060901
  Receipt Date: 20060901
  Transmission Date: 20061208
  Serious: Yes (Hospitalization)
  Sender: FDA-Public Use
  Company Number: None

PATIENT
  Age: 82 Year
  Sex: Male

DRUGS (1)
  1. TYGACIL [Suspect]
     Indication: PNEUMONIA
     Dosage: 50 MG IVPB
     Route: 042
     Dates: start: 20060703, end: 20060803

REACTIONS (1)
  - RENAL IMPAIRMENT [None]
